FAERS Safety Report 24851927 (Version 1)
Quarter: 2025Q1

REPORT INFORMATION
  Report Type: Report from Study
  Country: US (occurrence: US)
  Receive Date: 20250116
  Receipt Date: 20250116
  Transmission Date: 20250409
  Serious: Yes (Other)
  Sender: AMNEAL
  Company Number: US-AMNEAL PHARMACEUTICALS-2025-AMRX-00038

PATIENT
  Age: 23 Year
  Sex: Female
  Weight: 71.75 kg

DRUGS (9)
  1. LEVOTHYROXINE SODIUM [Suspect]
     Active Substance: LEVOTHYROXINE SODIUM
     Indication: Primary hypothyroidism
     Route: 048
     Dates: start: 20241202, end: 20241216
  2. THYROID, UNSPECIFIED [Suspect]
     Active Substance: THYROID, UNSPECIFIED
     Indication: Primary hypothyroidism
     Route: 048
     Dates: start: 20240717, end: 20241216
  3. SERTRALINE [Concomitant]
     Active Substance: SERTRALINE HYDROCHLORIDE
     Indication: Anxiety
     Route: 065
     Dates: start: 20230210
  4. IRON [Concomitant]
     Active Substance: IRON
     Indication: Deficiency anaemia
     Route: 065
     Dates: start: 20190503
  5. BUSPAR [Concomitant]
     Active Substance: BUSPIRONE HYDROCHLORIDE
     Indication: Anxiety
     Dosage: 10 MILLIGRAM, 2 /DAY
     Route: 065
     Dates: start: 20240812
  6. MELATONIN [Concomitant]
     Active Substance: MELATONIN
     Indication: Insomnia
     Route: 065
     Dates: start: 2018, end: 20241220
  7. VENLAFAXINE [Concomitant]
     Active Substance: VENLAFAXINE HYDROCHLORIDE
     Indication: Anxiety
     Route: 065
     Dates: start: 20241104, end: 20241220
  8. WEGOVY [Concomitant]
     Active Substance: SEMAGLUTIDE
     Indication: Overweight
     Route: 065
     Dates: start: 20240729, end: 20241220
  9. PORTIA [Concomitant]
     Active Substance: ETHINYL ESTRADIOL\LEVONORGESTREL
     Indication: Prophylaxis
     Route: 065
     Dates: start: 20240812, end: 20241220

REACTIONS (2)
  - Abortion spontaneous [Unknown]
  - Maternal exposure during pregnancy [Unknown]

NARRATIVE: CASE EVENT DATE: 20241223
